FAERS Safety Report 5890688-0 (Version None)
Quarter: 2008Q3

REPORT INFORMATION
  Report Type: 
  Country: None (occurrence: None)
  Receive Date: 20080918
  Receipt Date: 20080903
  Transmission Date: 20090109
  Serious: Yes (Other)
  Sender: FDA-Public Use
  Company Number: CIP08001489

PATIENT
  Age: 73 Year
  Sex: Female

DRUGS (9)
  1. RISEDRONATE SODIUM [Suspect]
     Indication: OSTEOPOROSIS
     Dosage: 2.5 MG DAILY, ORAL
     Route: 048
     Dates: start: 20080518, end: 20080520
  2. ALFAROL (ALFACALCIDOL) [Concomitant]
  3. ASPARA-CA ( AASPARTATE CALCIUM) [Concomitant]
  4. ZOLPIDEM TARTRATE [Concomitant]
  5. ETODOLAC [Concomitant]
  6. METHYCOBAL /00324901/ (MECOBALAMIN) [Concomitant]
  7. SOLON (SOFALCONE) [Concomitant]
  8. CRESTOR [Concomitant]
  9. EPADEL (ETHYL ICOSAPENTATE) [Concomitant]

REACTIONS (9)
  - ALANINE AMINOTRANSFERASE INCREASED [None]
  - ASPARTATE AMINOTRANSFERASE INCREASED [None]
  - BLOOD ALKALINE PHOSPHATASE INCREASED [None]
  - BLOOD BILIRUBIN INCREASED [None]
  - BLOOD UREA INCREASED [None]
  - DECREASED APPETITE [None]
  - GASTRITIS EROSIVE [None]
  - JAUNDICE [None]
  - LIVER DISORDER [None]
